FAERS Safety Report 8660746 (Version 6)
Quarter: 2018Q2

REPORT INFORMATION
  Report Type: Spontaneous
  Country: US (occurrence: US)
  Receive Date: 20120711
  Receipt Date: 20180511
  Transmission Date: 20180711
  Serious: Yes (Hospitalization, Other)
  Sender: FDA-Public Use
  Company Number: US-MSD-1207USA000915

PATIENT
  Sex: Female
  Weight: 68.03 kg

DRUGS (6)
  1. FOSAMAX PLUS D [Suspect]
     Active Substance: ALENDRONATE SODIUM\CHOLECALCIFEROL
     Dosage: 70 MG/2800 MG
     Route: 048
     Dates: start: 20070904, end: 200803
  2. ALENDRONATE SODIUM. [Suspect]
     Active Substance: ALENDRONATE SODIUM
     Indication: OSTEOPENIA
     Dosage: 70 MG, UNK
     Route: 048
     Dates: start: 20080304, end: 200809
  3. CHOLECALCIFEROL [Concomitant]
     Active Substance: CHOLECALCIFEROL
     Dosage: 1000 MG, UNK
     Route: 065
     Dates: start: 1990
  4. FOSAMAX [Suspect]
     Active Substance: ALENDRONATE SODIUM
     Indication: OSTEOPENIA
     Dosage: 70 MG, UNK
     Route: 048
     Dates: start: 1999, end: 2008
  5. ALENDRONATE SODIUM. [Suspect]
     Active Substance: ALENDRONATE SODIUM
     Dosage: 70 MG, UNK
     Route: 048
     Dates: end: 201010
  6. CALCIUM (UNSPECIFIED) (+) VITAMIN D (UNSPECIFIED) [Concomitant]
     Active Substance: CALCIUM CARBONATE\VITAMIN D
     Dosage: 630/500  UNK, UNK
     Route: 065
     Dates: start: 1990

REACTIONS (23)
  - Pulmonary mass [Unknown]
  - Arthralgia [Unknown]
  - Intraductal proliferative breast lesion [Unknown]
  - Femur fracture [Not Recovered/Not Resolved]
  - Nocturia [Unknown]
  - Intramedullary rod insertion [Recovered/Resolved]
  - Mastectomy [Unknown]
  - Low turnover osteopathy [Unknown]
  - Scoliosis [Unknown]
  - Asthma [Unknown]
  - Fibroadenoma of breast [Unknown]
  - Cataract [Unknown]
  - Pain in extremity [Unknown]
  - Asthma [Unknown]
  - Biopsy breast [Unknown]
  - Cancer surgery [Unknown]
  - Type 2 diabetes mellitus [Not Recovered/Not Resolved]
  - Intraductal proliferative breast lesion [Unknown]
  - Cataract operation [Unknown]
  - Bone pain [Unknown]
  - Biopsy breast [Unknown]
  - Electrocardiogram Q waves [Unknown]
  - Hypercholesterolaemia [Not Recovered/Not Resolved]

NARRATIVE: CASE EVENT DATE: 20000620
